FAERS Safety Report 7979753-1 (Version None)
Quarter: 2011Q4

REPORT INFORMATION
  Report Type: 
  Country: None (occurrence: None)
  Receive Date: 20111214
  Receipt Date: 20111205
  Transmission Date: 20120403
  Serious: Yes (Other)
  Sender: FDA-Public Use
  Company Number: US-ROCHE-1019388

PATIENT
  Sex: Male

DRUGS (3)
  1. PEGASYS [Suspect]
     Indication: HEPATITIS C
     Dates: start: 20111010
  2. RIBAVIRIN [Suspect]
     Indication: HEPATITIS C
     Dates: start: 20111010
  3. TELAPREVIR [Suspect]
     Indication: HEPATITIS C
     Dates: start: 20111010

REACTIONS (4)
  - PYREXIA [None]
  - PAIN [None]
  - MALAISE [None]
  - YELLOW SKIN [None]
